FAERS Safety Report 24084334 (Version 1)
Quarter: 2024Q3

REPORT INFORMATION
  Report Type: Spontaneous
  Country: US (occurrence: None)
  Receive Date: 20240711
  Receipt Date: 20240711
  Transmission Date: 20241017
  Serious: Yes (Death)
  Sender: Public
  Company Number: None

PATIENT
  Age: 1 Year
  Sex: Male

DRUGS (1)
  1. SILDENAFIL [Suspect]
     Active Substance: SILDENAFIL
     Dosage: FREQUENCY : 3 TIMES A DAY;?OTHER ROUTE : G-TUBE;?
     Route: 050
     Dates: start: 20240619

REACTIONS (2)
  - Tracheal disorder [None]
  - Infection [None]

NARRATIVE: CASE EVENT DATE: 20240627
